FAERS Safety Report 16859515 (Version 3)
Quarter: 2019Q4

REPORT INFORMATION
  Report Type: Spontaneous
  Country: US (occurrence: US)
  Receive Date: 20190927
  Receipt Date: 20191104
  Transmission Date: 20200122
  Serious: No
  Sender: FDA-Public Use
  Company Number: US-AMGEN INC.-USASP2019157286

PATIENT
  Age: 46 Year
  Sex: Male
  Weight: 110.2 kg

DRUGS (4)
  1. XOPENEX [Concomitant]
     Active Substance: LEVALBUTEROL HYDROCHLORIDE
     Indication: DYSPNOEA
     Dosage: UNK UNK, AS NECESSARY
     Dates: start: 20190604
  2. FAMOTIDINE. [Concomitant]
     Active Substance: FAMOTIDINE
     Dosage: 40 MILLIGRAM, BID (AT BEDTIME)
     Route: 048
     Dates: start: 20190604
  3. AIMOVIG [Suspect]
     Active Substance: ERENUMAB-AOOE
     Indication: MIGRAINE
     Dosage: 70 MILLIGRAM UNK
     Route: 058
     Dates: start: 20190719, end: 20190801
  4. MELIXFLAM [Concomitant]
     Dosage: UNK UNK, AS NECESSARY
     Dates: start: 20190715

REACTIONS (6)
  - Blood pressure increased [Recovered/Resolved]
  - Palpitations [Recovered/Resolved]
  - Myofascial pain syndrome [Unknown]
  - Hepatic steatosis [Unknown]
  - Drug hypersensitivity [Recovered/Resolved]
  - Chest pain [Recovered/Resolved]

NARRATIVE: CASE EVENT DATE: 2019
